FAERS Safety Report 6168253-X (Version None)
Quarter: 2009Q2

REPORT INFORMATION
  Report Type: 
  Country: None (occurrence: None)
  Receive Date: 20090427
  Receipt Date: 20090422
  Transmission Date: 20091009
  Serious: Yes (Hospitalization)
  Sender: FDA-Public Use
  Company Number: CA-B.I. PHARMACEUTICALS,INC./RIDGEFIELD-2009-CN-00296CN

PATIENT
  Sex: Male
  Weight: 85.1 kg

DRUGS (9)
  1. CATAPRES-TTS-1 [Suspect]
     Route: 062
     Dates: start: 20030101
  2. MICARDIS [Suspect]
     Dosage: 160MG
     Route: 048
     Dates: start: 20020705
  3. LASIX [Concomitant]
     Dosage: 40MG
     Route: 048
     Dates: start: 20010531
  4. HYTRIN [Concomitant]
     Dosage: 10MG
     Route: 048
     Dates: start: 20030801
  5. MONOCOR [Concomitant]
     Dosage: 10MG
     Route: 048
     Dates: start: 20030801
  6. MIDAMOR [Concomitant]
     Dosage: 10MG
     Route: 048
     Dates: start: 20000918
  7. METFORMIN HCL [Concomitant]
     Indication: TYPE 2 DIABETES MELLITUS
     Dosage: 850MG
     Route: 048
     Dates: start: 20021223
  8. BEZALIP [Concomitant]
     Dosage: 400MG
     Route: 048
     Dates: start: 20021023
  9. NORVASC [Concomitant]
     Dosage: 5MG
     Route: 048

REACTIONS (3)
  - ANGINA PECTORIS [None]
  - OVERDOSE [None]
  - TYPE 2 DIABETES MELLITUS [None]
